FAERS Safety Report 12233179 (Version 1)
Quarter: 2016Q2

REPORT INFORMATION
  Report Type: Report from Study
  Country: CA (occurrence: CA)
  Receive Date: 20160404
  Receipt Date: 20160404
  Transmission Date: 20160815
  Serious: Yes (Congenital Anomaly)
  Sender: FDA-Public Use
  Company Number: CA-AMGEN-CANSL2016039533

PATIENT
  Age: 79 Year
  Sex: Female
  Weight: 58.96 kg

DRUGS (1)
  1. PROLIA [Suspect]
     Active Substance: DENOSUMAB
     Indication: OSTEOPOROSIS POSTMENOPAUSAL
     Dosage: 60 MG/ML, UNK
     Route: 065

REACTIONS (1)
  - Hypertonic bladder [Recovered/Resolved with Sequelae]

NARRATIVE: CASE EVENT DATE: 20160205
